FAERS Safety Report 8949871 (Version 1)
Quarter: 2012Q4

REPORT INFORMATION
  Report Type: 
  Country: IT (occurrence: IT)
  Receive Date: 20121206
  Receipt Date: 20121206
  Transmission Date: 20130627
  Serious: Yes (Hospitalization, Other)
  Sender: FDA-Public Use
  Company Number: IT-ROXANE LABORATORIES, INC.-2012-RO-02497RO

PATIENT
  Age: 33 Year
  Sex: Female

DRUGS (4)
  1. QUETIAPINE FUMARATE [Suspect]
     Dosage: 200 mg
  2. CITALOPRAM [Suspect]
     Dosage: 20 mg
  3. BROMAZEPAM [Suspect]
     Dosage: 400 mg
     Route: 048
  4. VALPROATE [Concomitant]
     Indication: CONVULSION
     Dosage: 1000 mg

REACTIONS (2)
  - Drug dependence [Recovered/Resolved]
  - Mental disorder [Recovered/Resolved]
